FAERS Safety Report 23104864 (Version 2)
Quarter: 2023Q4

REPORT INFORMATION
  Report Type: Spontaneous
  Country: SI (occurrence: SI)
  Receive Date: 20231025
  Receipt Date: 20231115
  Transmission Date: 20240109
  Serious: Yes (Life-Threatening, Hospitalization, Other)
  Sender: FDA-Public Use
  Company Number: SI-MLMSERVICE-20231012-4581687-1

PATIENT
  Age: 69 Year
  Sex: Female

DRUGS (21)
  1. OLANZAPINE [Suspect]
     Active Substance: OLANZAPINE
     Indication: Schizophrenia
     Dosage: 15 MILLIGRAM, ONCE A DAY
     Route: 065
     Dates: start: 202301, end: 202301
  2. OLANZAPINE [Suspect]
     Active Substance: OLANZAPINE
     Dosage: 5 MILLIGRAM, ONCE A DAY
     Route: 065
     Dates: start: 20230116, end: 202301
  3. OLANZAPINE [Suspect]
     Active Substance: OLANZAPINE
     Dosage: 20 MILLIGRAM, ONCE A DAY
     Route: 065
     Dates: start: 202301, end: 20230123
  4. QUETIAPINE [Suspect]
     Active Substance: QUETIAPINE
     Indication: Schizophrenia
     Dosage: 100 MILLIGRAM, ONCE A DAY
     Route: 065
     Dates: start: 202301, end: 20230123
  5. QUETIAPINE [Suspect]
     Active Substance: QUETIAPINE
     Dosage: 50 MILLIGRAM, ONCE A DAY
     Route: 065
     Dates: start: 20230113, end: 202301
  6. QUETIAPINE [Suspect]
     Active Substance: QUETIAPINE
     Dosage: 50 MILLIGRAM, ONCE A DAY
     Route: 065
     Dates: start: 20230118
  7. QUETIAPINE [Suspect]
     Active Substance: QUETIAPINE
     Dosage: 25 MILLIGRAM, ONCE A DAY
     Route: 065
     Dates: start: 20230202
  8. QUETIAPINE [Suspect]
     Active Substance: QUETIAPINE
     Dosage: 25 MILLIGRAM, ONCE A DAY
     Route: 065
     Dates: start: 20230217, end: 20230222
  9. RISPERIDONE [Suspect]
     Active Substance: RISPERIDONE
     Indication: Schizophrenia
     Dosage: 4 MILLIGRAM, ONCE A DAY
     Route: 065
     Dates: start: 2021, end: 202212
  10. RISPERIDONE [Suspect]
     Active Substance: RISPERIDONE
     Dosage: 5 MILLIGRAM, ONCE A DAY
     Route: 065
     Dates: start: 202212
  11. RISPERIDONE [Suspect]
     Active Substance: RISPERIDONE
     Dosage: UNK DOSE WAS FURTHER TITRATED
     Route: 065
     Dates: start: 202212, end: 202212
  12. RISPERIDONE [Suspect]
     Active Substance: RISPERIDONE
     Dosage: 9 MILLIGRAM, ONCE A DAY
     Route: 065
     Dates: end: 20230112
  13. RISPERIDONE [Suspect]
     Active Substance: RISPERIDONE
     Dosage: 8 MILLIGRAM, ONCE A DAY
     Route: 065
     Dates: start: 20230113, end: 202301
  14. RISPERIDONE [Suspect]
     Active Substance: RISPERIDONE
     Dosage: 6 MILLIGRAM, ONCE A DAY
     Route: 065
     Dates: start: 202301, end: 20230118
  15. ARIPIPRAZOLE [Concomitant]
     Active Substance: ARIPIPRAZOLE
     Indication: Product used for unknown indication
     Dosage: UNK
     Route: 065
  16. BIPERIDEN [Concomitant]
     Active Substance: BIPERIDEN
     Indication: Extrapyramidal disorder
     Dosage: 3 MILLIGRAM, ONCE A DAY
     Route: 065
     Dates: start: 202301
  17. BIPERIDEN [Concomitant]
     Active Substance: BIPERIDEN
     Indication: Parkinsonism
     Dosage: 2 MILLIGRAM, TWO TIMES A DAY
     Route: 065
     Dates: start: 20230112, end: 202301
  18. LACOSAMIDE [Concomitant]
     Active Substance: LACOSAMIDE
     Indication: Product used for unknown indication
     Dosage: UNK
     Route: 065
  19. LEVETIRACETAM [Concomitant]
     Active Substance: LEVETIRACETAM
     Indication: Product used for unknown indication
     Dosage: UNK
     Route: 065
  20. LORAZEPAM [Concomitant]
     Active Substance: LORAZEPAM
     Indication: Product used for unknown indication
     Dosage: 3 MILLIGRAM
     Route: 065
  21. SALINE [Concomitant]
     Active Substance: SODIUM CHLORIDE
     Indication: Hypovolaemia
     Dosage: UNK
     Route: 065
     Dates: start: 202301

REACTIONS (6)
  - Atrial fibrillation [Recovering/Resolving]
  - Pulmonary embolism [Recovering/Resolving]
  - Cardiac arrest [Recovered/Resolved]
  - Extrapyramidal disorder [Unknown]
  - Parkinsonism [Unknown]
  - Therapeutic response decreased [Unknown]

NARRATIVE: CASE EVENT DATE: 20230101
